FAERS Safety Report 18989583 (Version 1)
Quarter: 2021Q1

REPORT INFORMATION
  Report Type: Spontaneous
  Country: CN (occurrence: CN)
  Receive Date: 20210310
  Receipt Date: 20210310
  Transmission Date: 20210420
  Serious: Yes (Other)
  Sender: FDA-Public Use
  Company Number: CN-ROCHE-2781836

PATIENT
  Age: 34 Year
  Sex: Male
  Weight: 74 kg

DRUGS (6)
  1. PEMETREXED. [Suspect]
     Active Substance: PEMETREXED
     Indication: LUNG ADENOCARCINOMA
     Route: 041
     Dates: start: 20181012
  2. CISPLATIN. [Suspect]
     Active Substance: CISPLATIN
     Indication: LUNG ADENOCARCINOMA
     Route: 041
     Dates: start: 20181012
  3. PEMETREXED. [Suspect]
     Active Substance: PEMETREXED
     Route: 065
     Dates: start: 20190221
  4. AVASTIN [Suspect]
     Active Substance: BEVACIZUMAB
     Route: 065
     Dates: start: 20190221
  5. AVASTIN [Suspect]
     Active Substance: BEVACIZUMAB
     Indication: LUNG ADENOCARCINOMA
     Route: 041
     Dates: start: 20181012
  6. CISPLATIN. [Suspect]
     Active Substance: CISPLATIN
     Route: 041
     Dates: start: 20181012

REACTIONS (5)
  - Rash [Unknown]
  - Hiccups [Unknown]
  - Liver injury [Unknown]
  - Granulocyte count decreased [Unknown]
  - Gastrointestinal disorder [Unknown]

NARRATIVE: CASE EVENT DATE: 2019
